FAERS Safety Report 5402854-9 (Version None)
Quarter: 2007Q3

REPORT INFORMATION
  Report Type: 
  Country: None (occurrence: None)
  Receive Date: 20070727
  Receipt Date: 20070723
  Transmission Date: 20080115
  Serious: Yes (Hospitalization)
  Sender: FDA-Public Use
  Company Number: TCI2007A03473

PATIENT
  Age: 56 Year
  Sex: Male

DRUGS (2)
  1. TAKEPRON OD TABLETS [Suspect]
     Indication: GASTRIC ULCER
     Dosage: 15 MG (15 MG, 1 IN 1 D); PER ORAL
     Route: 048
     Dates: end: 20070710
  2. LANSAP (LANSOPRAZOLE, CLARITHROMYCIN, AMOXICILLIN) (PREPARATION FOR OR [Suspect]
     Dosage: PER ORAL
     Route: 048

REACTIONS (2)
  - BLOOD CREATINE PHOSPHOKINASE INCREASED [None]
  - OEDEMA PERIPHERAL [None]
